FAERS Safety Report 4811362-5 (Version None)
Quarter: 2005Q4

REPORT INFORMATION
  Report Type: 
  Country: None (occurrence: None)
  Receive Date: 20051027
  Receipt Date: 20051012
  Transmission Date: 20060501
  Serious: Yes (Hospitalization)
  Sender: FDA-Public Use
  Company Number: NL-ABBOTT-05P-114-0313578-00

PATIENT
  Sex: Male
  Weight: 75 kg

DRUGS (10)
  1. HUMIRA [Suspect]
     Indication: RHEUMATOID ARTHRITIS
     Route: 058
     Dates: start: 20040505, end: 20050922
  2. HUMIRA [Suspect]
     Dates: start: 20051005
  3. ARCOXIA [Concomitant]
     Indication: RHEUMATOID ARTHRITIS
     Dates: start: 20040101
  4. LEFLUNOMIDE [Concomitant]
     Indication: RHEUMATOID ARTHRITIS
     Dates: start: 20000101
  5. OMEPRAZOLE [Concomitant]
     Indication: GASTRIC DISORDER
     Dates: start: 19980101
  6. AMLODIPINE [Concomitant]
     Indication: HYPERTENSION
     Dates: start: 20010101
  7. HYDROCHLOROTHIAZIDE [Concomitant]
     Indication: HYPERTENSION
     Dates: start: 20000101
  8. METOPROLOL [Concomitant]
     Indication: HYPERTENSION
     Dates: start: 19970101
  9. ATORVASTATIN CALCIUM [Concomitant]
     Indication: HYPERTENSION
     Dates: start: 20040101
  10. HUMIRA (COMMERCIAL) [Concomitant]
     Indication: RHEUMATOID ARTHRITIS
     Route: 058
     Dates: start: 20040225

REACTIONS (2)
  - ANAL FISTULA [None]
  - PERIANAL ABSCESS [None]
